FAERS Safety Report 24648645 (Version 6)
Quarter: 2025Q3

REPORT INFORMATION
  Report Type: Spontaneous
  Country: EU (occurrence: EU)
  Receive Date: 20241121
  Receipt Date: 20250821
  Transmission Date: 20251020
  Serious: Yes (Hospitalization, Other)
  Sender: MYLAN
  Company Number: EU-MYLANLABS-2024M1102607

PATIENT
  Age: 90 Year
  Sex: Male

DRUGS (40)
  1. XANAX [Suspect]
     Active Substance: ALPRAZOLAM
     Indication: Stress
  2. XANAX [Suspect]
     Active Substance: ALPRAZOLAM
     Indication: Blood pressure increased
     Route: 048
  3. XANAX [Suspect]
     Active Substance: ALPRAZOLAM
     Indication: Insomnia
     Route: 048
  4. XANAX [Suspect]
     Active Substance: ALPRAZOLAM
  5. XANAX [Suspect]
     Active Substance: ALPRAZOLAM
     Dosage: 0.5 MILLIGRAM, TID (3 TIMES PER DAY 0.5 MG OF XANAX)
     Route: 048
  6. XANAX [Suspect]
     Active Substance: ALPRAZOLAM
     Dosage: 0.5 MILLIGRAM, TID (3 TIMES PER DAY 0.5 MG OF XANAX)
     Route: 048
  7. XANAX [Suspect]
     Active Substance: ALPRAZOLAM
     Dosage: 0.5 MILLIGRAM, TID (3 TIMES PER DAY 0.5 MG OF XANAX)
  8. XANAX [Suspect]
     Active Substance: ALPRAZOLAM
     Dosage: 0.5 MILLIGRAM, TID (3 TIMES PER DAY 0.5 MG OF XANAX)
  9. XANAX [Suspect]
     Active Substance: ALPRAZOLAM
     Dosage: 0.25 MILLIGRAM, TID (SPLITTING THE 0.5MG TABLET TO 0.25MG)
  10. XANAX [Suspect]
     Active Substance: ALPRAZOLAM
     Dosage: 0.25 MILLIGRAM, TID (SPLITTING THE 0.5MG TABLET TO 0.25MG)
     Route: 048
  11. XANAX [Suspect]
     Active Substance: ALPRAZOLAM
     Dosage: 0.25 MILLIGRAM, TID (SPLITTING THE 0.5MG TABLET TO 0.25MG)
     Route: 048
  12. XANAX [Suspect]
     Active Substance: ALPRAZOLAM
     Dosage: 0.25 MILLIGRAM, TID (SPLITTING THE 0.5MG TABLET TO 0.25MG)
  13. XANAX [Suspect]
     Active Substance: ALPRAZOLAM
     Dosage: 0.5 MILLIGRAM, TID (3 TIMES PER DAY 0.5 MG OF XANAX)
     Route: 048
     Dates: start: 20241119
  14. XANAX [Suspect]
     Active Substance: ALPRAZOLAM
     Dosage: 0.5 MILLIGRAM, TID (3 TIMES PER DAY 0.5 MG OF XANAX)
     Route: 048
     Dates: start: 20241119
  15. XANAX [Suspect]
     Active Substance: ALPRAZOLAM
     Dosage: 0.5 MILLIGRAM, TID (3 TIMES PER DAY 0.5 MG OF XANAX)
     Dates: start: 20241119
  16. XANAX [Suspect]
     Active Substance: ALPRAZOLAM
     Dosage: 0.5 MILLIGRAM, TID (3 TIMES PER DAY 0.5 MG OF XANAX)
     Dates: start: 20241119
  17. XANAX [Suspect]
     Active Substance: ALPRAZOLAM
     Dosage: 0.25 MILLIGRAM, QD (IN 10ML OF WATER (WITH THE AID OF A SYRINGE, 10ML ONCE PER DAY) )
  18. XANAX [Suspect]
     Active Substance: ALPRAZOLAM
     Dosage: 0.25 MILLIGRAM, QD (IN 10ML OF WATER (WITH THE AID OF A SYRINGE, 10ML ONCE PER DAY) )
     Route: 057
  19. XANAX [Suspect]
     Active Substance: ALPRAZOLAM
     Dosage: 0.25 MILLIGRAM, QD (IN 10ML OF WATER (WITH THE AID OF A SYRINGE, 10ML ONCE PER DAY) )
     Route: 057
  20. XANAX [Suspect]
     Active Substance: ALPRAZOLAM
     Dosage: 0.25 MILLIGRAM, QD (IN 10ML OF WATER (WITH THE AID OF A SYRINGE, 10ML ONCE PER DAY) )
  21. XANAX [Suspect]
     Active Substance: ALPRAZOLAM
     Route: 065
  22. XANAX [Suspect]
     Active Substance: ALPRAZOLAM
  23. XANAX [Suspect]
     Active Substance: ALPRAZOLAM
  24. XANAX [Suspect]
     Active Substance: ALPRAZOLAM
     Route: 065
  25. XANAX [Suspect]
     Active Substance: ALPRAZOLAM
     Dosage: 0.25 MILLIGRAM, QD (DAILY)
  26. XANAX [Suspect]
     Active Substance: ALPRAZOLAM
     Dosage: 0.25 MILLIGRAM, QD (DAILY)
  27. XANAX [Suspect]
     Active Substance: ALPRAZOLAM
     Dosage: 0.25 MILLIGRAM, QD (DAILY)
     Route: 065
  28. XANAX [Suspect]
     Active Substance: ALPRAZOLAM
     Dosage: 0.25 MILLIGRAM, QD (DAILY)
     Route: 065
  29. OLMESARTAN [Suspect]
     Active Substance: OLMESARTAN
     Indication: Blood pressure abnormal
  30. OLMESARTAN [Suspect]
     Active Substance: OLMESARTAN
     Indication: Insomnia
     Route: 048
  31. OLMESARTAN [Suspect]
     Active Substance: OLMESARTAN
     Route: 048
  32. OLMESARTAN [Suspect]
     Active Substance: OLMESARTAN
  33. DUTASTERIDE\TAMSULOSIN [Suspect]
     Active Substance: DUTASTERIDE\TAMSULOSIN
     Indication: Prostate cancer
  34. DUTASTERIDE\TAMSULOSIN [Suspect]
     Active Substance: DUTASTERIDE\TAMSULOSIN
     Indication: Insomnia
     Route: 065
  35. DUTASTERIDE\TAMSULOSIN [Suspect]
     Active Substance: DUTASTERIDE\TAMSULOSIN
     Route: 065
  36. DUTASTERIDE\TAMSULOSIN [Suspect]
     Active Substance: DUTASTERIDE\TAMSULOSIN
  37. CLOPIDOGREL BISULFATE [Suspect]
     Active Substance: CLOPIDOGREL BISULFATE
     Indication: Coagulopathy
  38. CLOPIDOGREL BISULFATE [Suspect]
     Active Substance: CLOPIDOGREL BISULFATE
     Indication: Insomnia
     Route: 065
  39. CLOPIDOGREL BISULFATE [Suspect]
     Active Substance: CLOPIDOGREL BISULFATE
     Route: 065
  40. CLOPIDOGREL BISULFATE [Suspect]
     Active Substance: CLOPIDOGREL BISULFATE

REACTIONS (16)
  - Coma [Recovered/Resolved]
  - Heart rate increased [Recovered/Resolved]
  - Chills [Recovered/Resolved]
  - Muscle spasms [Recovered/Resolved]
  - Burning sensation [Recovered/Resolved]
  - Fall [Recovered/Resolved]
  - Tongue oedema [Not Recovered/Not Resolved]
  - Lip oedema [Not Recovered/Not Resolved]
  - Eyelid oedema [Not Recovered/Not Resolved]
  - Glossodynia [Not Recovered/Not Resolved]
  - Blood pressure abnormal [Recovered/Resolved]
  - Lip pain [Not Recovered/Not Resolved]
  - Treatment noncompliance [Unknown]
  - Product use in unapproved indication [Unknown]
  - Prescription drug used without a prescription [Unknown]
  - Wrong technique in product usage process [Unknown]

NARRATIVE: CASE EVENT DATE: 20241120
